FAERS Safety Report 23680371 (Version 1)
Quarter: 2024Q1

REPORT INFORMATION
  Report Type: Spontaneous
  Country: DE (occurrence: DE)
  Receive Date: 20240328
  Receipt Date: 20240328
  Transmission Date: 20240410
  Serious: Yes (Hospitalization, Other)
  Sender: FDA-Public Use
  Company Number: DE-EMA-DD-20240313-7482715-111755

PATIENT
  Age: 56 Year
  Sex: Female
  Weight: 60 kg

DRUGS (6)
  1. LENALIDOMIDE [Suspect]
     Active Substance: LENALIDOMIDE
     Indication: Plasma cell myeloma
     Dosage: 25 MILLIGRAM, ONCE A DAY
     Route: 065
     Dates: start: 20180523, end: 20180529
  2. CARFILZOMIB [Suspect]
     Active Substance: CARFILZOMIB
     Indication: Plasma cell myeloma
     Dosage: 34 MILLIGRAM
     Route: 042
     Dates: start: 20180523, end: 20180524
  3. DEXAMETHASONE [Suspect]
     Active Substance: DEXAMETHASONE
     Indication: Plasma cell myeloma
     Dosage: 40 MILLIGRAM, ONCE A DAY
     Route: 048
     Dates: start: 20180523, end: 20180523
  4. COTRIM [Concomitant]
     Active Substance: SULFAMETHOXAZOLE\TRIMETHOPRIM
     Indication: Prophylaxis
     Dosage: 1920 MILLIGRAM
     Route: 065
     Dates: start: 20180523, end: 20180529
  5. ACYCLOVIR [Concomitant]
     Active Substance: ACYCLOVIR
     Indication: Prophylaxis
     Dosage: 400 MILLIGRAM
     Route: 065
     Dates: start: 20180523, end: 20180529
  6. ASPIRIN [Concomitant]
     Active Substance: ASPIRIN
     Indication: Prophylaxis
     Dosage: UNK
     Route: 065
     Dates: start: 20180523

REACTIONS (1)
  - Sepsis syndrome [Recovered/Resolved]

NARRATIVE: CASE EVENT DATE: 20180530
